FAERS Safety Report 24674718 (Version 3)
Quarter: 2024Q4

REPORT INFORMATION
  Report Type: Report from Study
  Country: US (occurrence: US)
  Receive Date: 20241128
  Receipt Date: 20241213
  Transmission Date: 20250115
  Serious: Yes (Hospitalization)
  Sender: SUNOVION
  Company Number: US-SUMITOMO PHARMA SWITZERLAND GMBH-2024SPA005500

PATIENT

DRUGS (3)
  1. ORGOVYX [Suspect]
     Active Substance: RELUGOLIX
     Indication: Prostate cancer
     Dosage: 360 MG, SINGLE
     Route: 048
     Dates: start: 20231111, end: 20231111
  2. ORGOVYX [Suspect]
     Active Substance: RELUGOLIX
     Dosage: 120 MG, QD
     Route: 048
     Dates: start: 20231112
  3. LYNPARZA [Concomitant]
     Active Substance: OLAPARIB
     Dosage: 150 MG, BID
     Route: 065

REACTIONS (4)
  - Oesophageal mass [Unknown]
  - Haemoptysis [Unknown]
  - Dysphagia [Unknown]
  - Gastrointestinal tube insertion [Unknown]
